FAERS Safety Report 8432617-1 (Version None)
Quarter: 2012Q2

REPORT INFORMATION
  Report Type: 
  Country: None (occurrence: None)
  Receive Date: 20120613
  Receipt Date: 20120606
  Transmission Date: 20120825
  Serious: Yes (Hospitalization)
  Sender: FDA-Public Use
  Company Number: DE-AMGEN-DEUCT2012035698

PATIENT
  Age: 62 Year
  Sex: Female
  Weight: 73 kg

DRUGS (2)
  1. PANITUMUMAB [Suspect]
     Indication: RECTAL CANCER
     Dosage: 6 MG/KG, UNK
     Route: 042
     Dates: start: 20111227
  2. RADIATION THERAPY [Concomitant]
     Indication: RECTAL CANCER
     Dosage: UNK
     Dates: end: 20120216

REACTIONS (1)
  - FEMALE GENITAL TRACT FISTULA [None]
